FAERS Safety Report 12360418 (Version 1)
Quarter: 2016Q2

REPORT INFORMATION
  Report Type: Spontaneous
  Country: US (occurrence: US)
  Receive Date: 20160512
  Receipt Date: 20160512
  Transmission Date: 20160815
  Serious: No
  Sender: FDA-Public Use
  Company Number: US-WARNER CHILCOTT, LLC-1052011

PATIENT
  Age: 93 Year
  Sex: Female

DRUGS (4)
  1. ACTONEL [Suspect]
     Active Substance: RISEDRONATE SODIUM
     Indication: OSTEOPOROSIS
     Route: 048
  2. ATENOLOL. [Concomitant]
     Active Substance: ATENOLOL
  3. ISOSORBIDE. [Concomitant]
     Active Substance: ISOSORBIDE
  4. BABY ASPIRIN [Concomitant]
     Active Substance: ASPIRIN

REACTIONS (6)
  - Skin discolouration [Not Recovered/Not Resolved]
  - Pruritus [Not Recovered/Not Resolved]
  - Skin burning sensation [Not Recovered/Not Resolved]
  - Erythema [Not Recovered/Not Resolved]
  - Mass [Not Recovered/Not Resolved]
  - Pain [Not Recovered/Not Resolved]
